FAERS Safety Report 15534095 (Version 1)
Quarter: 2018Q4

REPORT INFORMATION
  Report Type: Report from Study
  Country: US (occurrence: US)
  Receive Date: 20181019
  Receipt Date: 20181019
  Transmission Date: 20190205
  Serious: Yes (Other)
  Sender: FDA-Public Use
  Company Number: US-SA-2018SA284884

PATIENT
  Age: 69 Year
  Sex: Female

DRUGS (1)
  1. INSULIN GLARGINE [Suspect]
     Active Substance: INSULIN GLARGINE
     Dosage: UNK UNK, UNK
     Route: 065
     Dates: start: 201808

REACTIONS (3)
  - Unevaluable event [Not Recovered/Not Resolved]
  - Malaise [Unknown]
  - Myocardial infarction [Not Recovered/Not Resolved]
